FAERS Safety Report 5787895-4 (Version None)
Quarter: 2008Q2

REPORT INFORMATION
  Report Type: 
  Country: None (occurrence: None)
  Receive Date: 20080625
  Receipt Date: 20080624
  Transmission Date: 20081010
  Serious: Yes (Other)
  Sender: FDA-Public Use
  Company Number: A0734451A

PATIENT
  Age: 29 Year
  Sex: Female
  Weight: 103 kg

DRUGS (2)
  1. ALLI [Suspect]
     Dosage: 1CAP PER DAY
     Route: 048
     Dates: start: 20080616, end: 20080618
  2. NO CONCURRENT MEDICATION [Concomitant]

REACTIONS (4)
  - ABDOMINAL PAIN UPPER [None]
  - GASTRIC DISORDER [None]
  - HAEMATOCHEZIA [None]
  - RECTAL HAEMORRHAGE [None]
